FAERS Safety Report 25123025 (Version 1)
Quarter: 2025Q1

REPORT INFORMATION
  Report Type: Spontaneous
  Country: US (occurrence: US)
  Receive Date: 20250326
  Receipt Date: 20250326
  Transmission Date: 20250408
  Serious: No
  Sender: BRISTOL-MYERS SQUIBB COMPANY
  Company Number: US-BRISTOL-MYERS SQUIBB COMPANY-2025-035472

PATIENT
  Age: 59 Year
  Sex: Male

DRUGS (4)
  1. ORENCIA [Suspect]
     Active Substance: ABATACEPT
     Indication: Dermatitis atopic
     Route: 058
     Dates: start: 20241209
  2. ORENCIA [Suspect]
     Active Substance: ABATACEPT
     Indication: Neutropenia
  3. ORENCIA [Suspect]
     Active Substance: ABATACEPT
     Indication: Cytopenia
  4. ORENCIA [Suspect]
     Active Substance: ABATACEPT
     Indication: Immune thrombocytopenia

REACTIONS (5)
  - Device difficult to use [Unknown]
  - Incorrect dose administered [Unknown]
  - Skin wound [Unknown]
  - Product administration error [Unknown]
  - Off label use [Unknown]
